FAERS Safety Report 14015996 (Version 1)
Quarter: 2017Q3

REPORT INFORMATION
  Report Type: Spontaneous
  Country: US (occurrence: None)
  Receive Date: 20170927
  Receipt Date: 20170927
  Transmission Date: 20171128
  Serious: Yes (Other)
  Sender: FDA-Public Use
  Company Number: None

PATIENT
  Age: 58 Year
  Sex: Female
  Weight: 89.81 kg

DRUGS (5)
  1. CHONDROITIN MSM GLUCOSAMINE [Concomitant]
  2. SPIRULINA [Concomitant]
     Active Substance: SPIRULINA
  3. MULTI VIT 50+ [Concomitant]
  4. CLINDAMYCIN HCL 150MG CAPSULE ACT [Suspect]
     Active Substance: CLINDAMYCIN HYDROCHLORIDE
     Indication: ROOT CANAL INFECTION
     Route: 048
     Dates: start: 20170606, end: 20170608
  5. L-LYSINE [Concomitant]
     Active Substance: LYSINE

REACTIONS (5)
  - Abdominal discomfort [None]
  - Vulvovaginal pruritus [None]
  - Diarrhoea [None]
  - Rash [None]
  - Nausea [None]

NARRATIVE: CASE EVENT DATE: 20170608
